FAERS Safety Report 22094047 (Version 2)
Quarter: 2023Q1

REPORT INFORMATION
  Report Type: Report from Study
  Country: US (occurrence: US)
  Receive Date: 20230314
  Receipt Date: 20230328
  Transmission Date: 20230418
  Serious: Yes (Hospitalization, Other)
  Sender: FDA-Public Use
  Company Number: US-TAKEDA-2023TUS017876

PATIENT
  Age: 66 Year
  Sex: Female
  Weight: 63.49 kg

DRUGS (24)
  1. HUMAN IMMUNOGLOBULIN G [Suspect]
     Active Substance: HUMAN IMMUNOGLOBULIN G
     Indication: Selective IgG subclass deficiency
     Dosage: 35 GRAM, Q4WEEKS
     Route: 042
     Dates: start: 20221214
  2. HUMAN IMMUNOGLOBULIN G [Suspect]
     Active Substance: HUMAN IMMUNOGLOBULIN G
     Indication: Hepatitis viral
  3. DIPHENHYDRAMINE [Concomitant]
     Active Substance: DIPHENHYDRAMINE
  4. SODIUM CHLORIDE [Concomitant]
     Active Substance: SODIUM CHLORIDE
  5. EPINEPHRINE [Concomitant]
     Active Substance: EPINEPHRINE
  6. BIOTIN [Concomitant]
     Active Substance: BIOTIN
  7. NALTREXONE HYDROCHLORIDE [Concomitant]
     Active Substance: NALTREXONE HYDROCHLORIDE
  8. GABAPENTIN [Concomitant]
     Active Substance: GABAPENTIN
  9. CEFADROXIL [Concomitant]
     Active Substance: CEFADROXIL
  10. TRAMADOL HCL [Concomitant]
     Active Substance: TRAMADOL HYDROCHLORIDE
  11. CETIRIZINE HYDROCHLORIDE [Concomitant]
     Active Substance: CETIRIZINE HYDROCHLORIDE
  12. ACETAMINOPHEN [Concomitant]
     Active Substance: ACETAMINOPHEN
  13. MELOXICAM [Concomitant]
     Active Substance: MELOXICAM
  14. CALCIUM\VITAMIN D [Concomitant]
     Active Substance: CALCIUM\VITAMIN D
  15. Glucosamine chondroitin msm [Concomitant]
  16. OTEZLA [Concomitant]
     Active Substance: APREMILAST
  17. DOXYCYCLINE HYCLATE [Concomitant]
     Active Substance: DOXYCYCLINE HYCLATE
  18. VITAMIN C [Concomitant]
     Active Substance: ASCORBIC ACID
  19. PROTONIX [Concomitant]
     Active Substance: PANTOPRAZOLE SODIUM
  20. HERBALS\TURMERIC [Concomitant]
     Active Substance: HERBALS\TURMERIC
  21. NALTREXONE [Concomitant]
     Active Substance: NALTREXONE
  22. CHONDROITIN SULFATE (BOVINE)\GLUCOSAMINE HYDROCHLORIDE [Concomitant]
     Active Substance: CHONDROITIN SULFATE (BOVINE)\GLUCOSAMINE HYDROCHLORIDE
  23. TRAMADOL [Concomitant]
     Active Substance: TRAMADOL
  24. JUICEFESTIV [Concomitant]

REACTIONS (3)
  - Postoperative wound infection [Unknown]
  - Arthritis infective [Unknown]
  - Product use in unapproved indication [Unknown]

NARRATIVE: CASE EVENT DATE: 20221214
